FAERS Safety Report 19943187 (Version 1)
Quarter: 2021Q4

REPORT INFORMATION
  Report Type: Spontaneous
  Country: US (occurrence: US)
  Receive Date: 20211008
  Receipt Date: 20211008
  Transmission Date: 20220303
  Serious: Yes (Other)
  Sender: FDA-Public Use
  Company Number: None

PATIENT
  Age: 64 Year
  Sex: Male
  Weight: 84.24 kg

DRUGS (4)
  1. MORPHINE [Suspect]
     Active Substance: MORPHINE
     Indication: Agitation
     Route: 048
  2. FENTANYL [Concomitant]
     Active Substance: FENTANYL
  3. DOXAZOSIN [Concomitant]
     Active Substance: DOXAZOSIN MESYLATE
  4. OLANZAPINE [Concomitant]
     Active Substance: OLANZAPINE

REACTIONS (8)
  - Withdrawal syndrome [None]
  - Aggression [None]
  - Pain [None]
  - Stress [None]
  - Emotional disorder [None]
  - Agitation [None]
  - Drug ineffective [None]
  - Blood pressure decreased [None]

NARRATIVE: CASE EVENT DATE: 20210525
